FAERS Safety Report 9969893 (Version 2)
Quarter: 2014Q2

REPORT INFORMATION
  Report Type: Spontaneous
  Country: FR (occurrence: FR)
  Receive Date: 20140306
  Receipt Date: 20140422
  Transmission Date: 20141212
  Serious: Yes (Hospitalization)
  Sender: FDA-Public Use
  Company Number: FR-JNJFOC-20140301150

PATIENT
  Age: 46 Year
  Sex: Male
  Weight: 66 kg

DRUGS (2)
  1. IXPRIM [Suspect]
     Indication: BACK PAIN
     Route: 048
     Dates: start: 201301, end: 201301
  2. IBUPROFENE [Suspect]
     Indication: BACK PAIN
     Route: 048
     Dates: start: 201301, end: 201301

REACTIONS (2)
  - Colitis [Recovered/Resolved]
  - Nausea [Recovered/Resolved]
